FAERS Safety Report 5119787-8 (Version None)
Quarter: 2006Q4

REPORT INFORMATION
  Report Type: 
  Country: None (occurrence: None)
  Receive Date: 20061003
  Receipt Date: 20060920
  Transmission Date: 20070319
  Serious: Yes (Other)
  Sender: FDA-Public Use
  Company Number: PHBS2006JP14729

PATIENT
  Age: 31 Year
  Sex: Male

DRUGS (4)
  1. CYCLOSPORINE [Suspect]
     Indication: BEHCET'S SYNDROME
     Route: 065
  2. COLCHICINE [Concomitant]
     Indication: BEHCET'S SYNDROME
  3. ASPIRIN [Concomitant]
     Indication: BEHCET'S SYNDROME
  4. STEROIDS NOS [Concomitant]
     Indication: UVEITIS

REACTIONS (3)
  - MENINGISM [None]
  - UVEITIS [None]
  - VISUAL ACUITY REDUCED [None]
